FAERS Safety Report 8058223-9 (Version None)
Quarter: 2012Q1

REPORT INFORMATION
  Report Type: 
  Country: None (occurrence: None)
  Receive Date: 20120111
  Receipt Date: 20111228
  Transmission Date: 20120608
  Serious: Yes (Death)
  Sender: FDA-Public Use
  Company Number: 2011SP060235

PATIENT
  Age: 63 Year
  Weight: 140 kg

DRUGS (13)
  1. ALLOPURINOL [Concomitant]
  2. PROMAGNOR [Concomitant]
  3. BROMPERIDOL DECANOATE [Concomitant]
  4. ENOXAPARIN SODIUM [Concomitant]
  5. WARFARIN SODIUM [Concomitant]
  6. TERAZOSIN HCL [Concomitant]
  7. SYCREST (ASENAPINE /05706901/) (10 MG) [Suspect]
     Indication: BIPOLAR DISORDER
     Dosage: 20 MG;QD;SL
     Route: 060
     Dates: start: 20111214, end: 20111221
  8. OSTEO PLUS [Concomitant]
  9. TEGRETOL [Concomitant]
  10. FUROSEMIDE [Concomitant]
  11. ABILIFY [Concomitant]
  12. CRESTOR [Concomitant]
  13. LORMETAZEPAM [Concomitant]

REACTIONS (2)
  - BLOOD CREATININE INCREASED [None]
  - CARDIAC FAILURE [None]
